FAERS Safety Report 7269409-5 (Version None)
Quarter: 2011Q1

REPORT INFORMATION
  Report Type: 
  Country: None (occurrence: None)
  Receive Date: 20110202
  Receipt Date: 20110128
  Transmission Date: 20110831
  Serious: Yes (Death)
  Sender: FDA-Public Use
  Company Number: DK-NOVOPROD-315071

PATIENT
  Age: 61 Year
  Sex: Male
  Weight: 96 kg

DRUGS (10)
  1. VICTOZA [Suspect]
     Indication: DIABETES MELLITUS
     Dosage: 1.2 MG, QD
     Route: 058
     Dates: start: 20100413
  2. NITROFURANTOIN [Concomitant]
     Indication: URINARY TRACT INFECTION
     Dosage: 50 MG, UNK
     Route: 048
     Dates: end: 20100906
  3. METFORMIN [Concomitant]
     Dosage: 2250 MG, UNK
     Route: 048
     Dates: end: 20100906
  4. D VITAMIINI [Concomitant]
     Indication: HYPOVITAMINOSIS
     Dosage: 1000 IE, TID
     Route: 048
     Dates: start: 20100126, end: 20100906
  5. SIMVASTATIN [Concomitant]
     Indication: HYPERCHOLESTEROLAEMIA
     Dosage: 40 MG, UNK
     Route: 048
  6. ZOPICLONE [Concomitant]
     Indication: INSOMNIA
     Dosage: 7.5 MG, UNK
     Route: 048
  7. ACETYLSALICYLIC ACID SRT [Concomitant]
     Dosage: UNK
     Dates: start: 20060101
  8. TADALAFIL [Concomitant]
     Indication: ERECTILE DYSFUNCTION
     Dosage: 10 MG, QD
     Route: 048
     Dates: start: 20100126
  9. TELMISARTAN [Concomitant]
     Indication: HYPERTENSION
     Dosage: 80 MG, UNK
     Route: 048
     Dates: start: 20100413, end: 20100906
  10. TELMISARTAN [Concomitant]
     Dosage: 25 MG, UNK
     Route: 048

REACTIONS (1)
  - GASTRITIS HAEMORRHAGIC [None]
